FAERS Safety Report 8454075-3 (Version None)
Quarter: 2012Q2

REPORT INFORMATION
  Report Type: 
  Country: None (occurrence: None)
  Receive Date: 20120620
  Receipt Date: 20120614
  Transmission Date: 20120825
  Serious: Yes (Hospitalization)
  Sender: FDA-Public Use
  Company Number: DE-PFIZER INC-2012144190

PATIENT
  Age: 9 Year
  Sex: Male
  Weight: 35 kg

DRUGS (1)
  1. SOMATROPIN RDNA [Suspect]
     Indication: HYPOPITUITARISM
     Dosage: 1.2 MG, 1X/DAY
     Dates: start: 20090811

REACTIONS (2)
  - VISION BLURRED [None]
  - HEADACHE [None]
